FAERS Safety Report 15347502 (Version 3)
Quarter: 2018Q3

REPORT INFORMATION
  Report Type: Spontaneous
  Country: JP (occurrence: JP)
  Receive Date: 20180904
  Receipt Date: 20180911
  Transmission Date: 20181010
  Serious: Yes (Hospitalization, Other)
  Sender: FDA-Public Use
  Company Number: JP-009507513-1805JPN003308J

PATIENT
  Age: 65 Year
  Sex: Male
  Weight: 35 kg

DRUGS (6)
  1. OXINORM [Concomitant]
     Indication: CANCER PAIN
     Dosage: 2.5 MG, UNK
     Route: 048
     Dates: start: 20180303, end: 20180508
  2. LANSOPRAZOLE OD [Concomitant]
     Active Substance: LANSOPRAZOLE
     Indication: ABDOMINAL PAIN UPPER
     Dosage: 15 MG, QD
     Route: 048
     Dates: start: 20180306
  3. WARFARIN [Concomitant]
     Active Substance: WARFARIN
     Indication: HAEMOSTASIS
     Dosage: 3 MG, QD
     Route: 048
  4. OXYCODONE [Concomitant]
     Active Substance: OXYCODONE
     Indication: CANCER PAIN
     Dosage: 5 MG, BID
     Route: 048
     Dates: start: 20180303, end: 20180508
  5. KEYTRUDA [Suspect]
     Active Substance: PEMBROLIZUMAB
     Indication: NON-SMALL CELL LUNG CANCER
     Dosage: 100 MG, EVERY 4 WEEKS
     Route: 041
     Dates: start: 20180410, end: 20180507
  6. ZOLPIDEM TARTRATE OD [Concomitant]
     Active Substance: ZOLPIDEM TARTRATE
     Indication: INSOMNIA
     Dosage: 5 MG, QD
     Route: 048
     Dates: start: 20180226

REACTIONS (3)
  - Haematochezia [Unknown]
  - Decreased appetite [Recovered/Resolved]
  - Diarrhoea [Recovering/Resolving]

NARRATIVE: CASE EVENT DATE: 20180419
